FAERS Safety Report 25465747 (Version 1)
Quarter: 2025Q2

REPORT INFORMATION
  Report Type: Spontaneous
  Country: UA (occurrence: UA)
  Receive Date: 20250623
  Receipt Date: 20250623
  Transmission Date: 20250716
  Serious: Yes (Other)
  Sender: ALEXION PHARMACEUTICALS
  Company Number: UA-AstraZeneca-CH-00893134A

PATIENT
  Age: 33 Year

DRUGS (20)
  1. FASLODEX [Suspect]
     Active Substance: FULVESTRANT
     Route: 065
  2. GOSERELIN [Suspect]
     Active Substance: GOSERELIN
     Route: 065
  3. GOSERELIN [Suspect]
     Active Substance: GOSERELIN
     Route: 065
  4. FARESTON [Concomitant]
     Active Substance: TOREMIFENE CITRATE
     Route: 065
  5. TAMOXIFEN [Concomitant]
     Active Substance: TAMOXIFEN
     Route: 065
  6. DOXORUBICIN [Concomitant]
     Active Substance: DOXORUBICIN
     Route: 065
  7. CYCLOPHOSPHAMIDE [Concomitant]
     Active Substance: CYCLOPHOSPHAMIDE
     Route: 065
  8. DOCETAXEL [Concomitant]
     Active Substance: DOCETAXEL
     Route: 065
  9. ZOMETA [Concomitant]
     Active Substance: ZOLEDRONIC ACID
     Route: 065
  10. RIBOCICLIB [Concomitant]
     Active Substance: RIBOCICLIB
     Route: 065
  11. LETROZOLE [Concomitant]
     Active Substance: LETROZOLE
     Route: 065
  12. EVEROLIMUS [Concomitant]
     Active Substance: EVEROLIMUS
     Route: 065
  13. EXEMESTANE [Concomitant]
     Active Substance: EXEMESTANE
     Route: 065
  14. PALBOCICLIB [Concomitant]
     Active Substance: PALBOCICLIB
     Route: 065
  15. PACLITAXEL [Concomitant]
     Active Substance: PACLITAXEL
     Route: 065
  16. BICALUTAMIDE [Concomitant]
     Active Substance: BICALUTAMIDE
     Route: 065
  17. CAPECITABINE [Concomitant]
     Active Substance: CAPECITABINE
     Route: 065
  18. GEMCITABINE [Concomitant]
     Active Substance: GEMCITABINE
     Route: 065
  19. CARBOPLATIN [Concomitant]
     Active Substance: CARBOPLATIN
     Route: 065
  20. VINORELBINE [Concomitant]
     Active Substance: VINORELBINE TARTRATE
     Route: 065

REACTIONS (4)
  - Lymphadenopathy [Unknown]
  - Metastases to bone [Unknown]
  - Metastases to liver [Unknown]
  - Toxicity to various agents [Unknown]
